FAERS Safety Report 4991699-X (Version None)
Quarter: 2006Q2

REPORT INFORMATION
  Report Type: 
  Country: None (occurrence: None)
  Receive Date: 20060504
  Receipt Date: 20060501
  Transmission Date: 20061013
  Serious: Yes (Congenital Anomaly, Other)
  Sender: FDA-Public Use
  Company Number: US-GLAXOSMITHKLINE-A0604247A

PATIENT
  Sex: Female
  Weight: 2.8 kg

DRUGS (4)
  1. COMBIVIR [Suspect]
     Indication: HIV INFECTION
     Dosage: 2TAB PER DAY
     Dates: start: 20051114, end: 20060106
  2. EPIVIR [Suspect]
     Indication: HIV INFECTION
     Dosage: 300MGD UNKNOWN
     Dates: start: 20060106, end: 20060403
  3. VIRACEPT [Concomitant]
     Indication: HIV INFECTION
     Dosage: 2500MGD UNKNOWN
     Dates: start: 20051114, end: 20060403
  4. ZERIT [Concomitant]
     Indication: HIV INFECTION
     Dosage: 80MGD UNKNOWN
     Dates: start: 20060106, end: 20060403

REACTIONS (9)
  - CHORIOAMNIONITIS [None]
  - DRUG EXPOSURE DURING PREGNANCY [None]
  - FUNISITIS [None]
  - MECONIUM ABNORMAL [None]
  - MUSCLE DISORDER [None]
  - NEONATAL ASPIRATION [None]
  - PHLEBITIS [None]
  - SKULL MALFORMATION [None]
  - STILLBIRTH [None]
